FAERS Safety Report 23481825 (Version 1)
Quarter: 2024Q1

REPORT INFORMATION
  Report Type: Spontaneous
  Country: AT (occurrence: AT)
  Receive Date: 20240205
  Receipt Date: 20240205
  Transmission Date: 20240409
  Serious: Yes (Other)
  Sender: FDA-Public Use
  Company Number: AT-ABBVIE-5618529

PATIENT
  Age: 67 Year
  Sex: Male

DRUGS (2)
  1. RINVOQ [Suspect]
     Active Substance: UPADACITINIB
     Indication: Dermatitis atopic
     Route: 048
  2. RINVOQ [Suspect]
     Active Substance: UPADACITINIB
     Indication: Dermatitis atopic
     Dosage: DURATION TEXT: A FEW MONTHS
     Route: 048

REACTIONS (3)
  - Basal cell carcinoma [Recovering/Resolving]
  - Off label use [Unknown]
  - Off label use [Unknown]
